FAERS Safety Report 21782097 (Version 5)
Quarter: 2024Q2

REPORT INFORMATION
  Report Type: Report from Study
  Country: CO (occurrence: CO)
  Receive Date: 20221227
  Receipt Date: 20240422
  Transmission Date: 20240716
  Serious: Yes (Hospitalization, Disabling, Other)
  Sender: FDA-Public Use
  Company Number: CO-SA-SAC20211026000931

PATIENT
  Age: 38 Year
  Sex: Male

DRUGS (5)
  1. ALEMTUZUMAB [Suspect]
     Active Substance: ALEMTUZUMAB
     Indication: Multiple sclerosis
     Dosage: 12 MG, QD
     Route: 041
     Dates: start: 20210721, end: 20210723
  2. ALEMTUZUMAB [Suspect]
     Active Substance: ALEMTUZUMAB
     Dosage: UNK
     Route: 041
     Dates: start: 20200330, end: 202004
  3. PREDNISOLONE [Concomitant]
     Active Substance: PREDNISOLONE
     Dosage: 5 MG, QOD
     Route: 065
  4. BISACODYL [Concomitant]
     Active Substance: BISACODYL
     Dosage: UNK
     Route: 065
  5. OMEPRAZOLE [Concomitant]
     Active Substance: OMEPRAZOLE
     Dosage: UNK
     Route: 065

REACTIONS (31)
  - Haemolytic anaemia [Unknown]
  - Anaemia [Recovering/Resolving]
  - Fatigue [Recovering/Resolving]
  - Asthenia [Recovering/Resolving]
  - Thrombocytopenic purpura [Not Recovered/Not Resolved]
  - Platelet count decreased [Not Recovered/Not Resolved]
  - Viral infection [Not Recovered/Not Resolved]
  - Bacterial sepsis [Not Recovered/Not Resolved]
  - Urinary tract infection [Recovering/Resolving]
  - Pyrexia [Recovering/Resolving]
  - Loss of personal independence in daily activities [Not Recovered/Not Resolved]
  - Neurogenic bladder [Not Recovered/Not Resolved]
  - Mobility decreased [Not Recovered/Not Resolved]
  - Hypertension [Recovering/Resolving]
  - Urinary retention [Recovered/Resolved]
  - General physical health deterioration [Not Recovered/Not Resolved]
  - Nephrolithiasis [Recovering/Resolving]
  - Tachycardia [Recovering/Resolving]
  - Urinary tract infection [Not Recovered/Not Resolved]
  - Blood creatinine abnormal [Not Recovered/Not Resolved]
  - White blood cell disorder [Not Recovered/Not Resolved]
  - Balance disorder [Not Recovered/Not Resolved]
  - Musculoskeletal stiffness [Recovering/Resolving]
  - Somnolence [Recovering/Resolving]
  - Dyskinesia [Unknown]
  - Magnetic resonance imaging abnormal [Not Recovered/Not Resolved]
  - Tremor [Not Recovered/Not Resolved]
  - Dysarthria [Not Recovered/Not Resolved]
  - Condition aggravated [Not Recovered/Not Resolved]
  - Gait disturbance [Not Recovered/Not Resolved]
  - Bladder catheterisation [Unknown]

NARRATIVE: CASE EVENT DATE: 20210101
